FAERS Safety Report 23154171 (Version 1)
Quarter: 2023Q4

REPORT INFORMATION
  Report Type: Spontaneous
  Country: IT (occurrence: IT)
  Receive Date: 20231107
  Receipt Date: 20231107
  Transmission Date: 20240109
  Serious: Yes (Hospitalization)
  Sender: FDA-Public Use
  Company Number: None

PATIENT
  Age: 32 Year
  Sex: Female
  Weight: 80 kg

DRUGS (6)
  1. PIPERACILLIN AND TAZOBACTAM [Suspect]
     Active Substance: PIPERACILLIN SODIUM\TAZOBACTAM SODIUM
     Indication: Intervertebral discitis
     Route: 042
     Dates: start: 20230829, end: 20230925
  2. TEICOPLANIN [Suspect]
     Active Substance: TEICOPLANIN
     Indication: Intervertebral discitis
     Dosage: 1000 MG
     Route: 042
     Dates: start: 20230829, end: 20230926
  3. DULOXETINE [Concomitant]
     Active Substance: DULOXETINE
     Indication: Pain
     Dates: start: 20230915
  4. NALOXONE HYDROCHLORIDE\OXYCODONE HYDROCHLORIDE [Concomitant]
     Active Substance: NALOXONE HYDROCHLORIDE\OXYCODONE HYDROCHLORIDE
     Indication: Pain
     Dosage: 10 MG OXYCODONE HYDROCHLORIDE / 5 MG NALOXONE HYDROCHLORIDE EVERY 12 HOURS
     Route: 048
  5. PREGABALIN [Concomitant]
     Active Substance: PREGABALIN
     Indication: Pain
     Route: 048
     Dates: start: 20230830
  6. ACETAMINOPHEN [Concomitant]
     Active Substance: ACETAMINOPHEN
     Indication: Pain
     Route: 048

REACTIONS (4)
  - Leukopenia [Not Recovered/Not Resolved]
  - Neutropenia [Not Recovered/Not Resolved]
  - Hypertransaminasaemia [Not Recovered/Not Resolved]
  - Rash papular [None]

NARRATIVE: CASE EVENT DATE: 20230923
